FAERS Safety Report 6236603-1 (Version None)
Quarter: 2009Q2

REPORT INFORMATION
  Report Type: 
  Country: None (occurrence: None)
  Receive Date: 20090619
  Receipt Date: 20090608
  Transmission Date: 20091009
  Serious: Yes (Other)
  Sender: FDA-Public Use
  Company Number: CN-PFIZER INC-2009229469

PATIENT
  Age: 17 Year

DRUGS (1)
  1. ZOLOFT [Suspect]
     Route: 048
     Dates: start: 20090101

REACTIONS (13)
  - ABDOMINAL DISCOMFORT [None]
  - AGITATION [None]
  - DECREASED APPETITE [None]
  - DIZZINESS [None]
  - HALLUCINATION [None]
  - HALLUCINATION, AUDITORY [None]
  - HYPERHIDROSIS [None]
  - HYPOAESTHESIA [None]
  - MEMORY IMPAIRMENT [None]
  - MUSCLE TWITCHING [None]
  - MUSCULAR WEAKNESS [None]
  - OVERDOSE [None]
  - VISUAL ACUITY REDUCED [None]
